FAERS Safety Report 7525512-3 (Version None)
Quarter: 2011Q2

REPORT INFORMATION
  Report Type: 
  Country: None (occurrence: None)
  Receive Date: 20110606
  Receipt Date: 20110103
  Transmission Date: 20111010
  Serious: Yes (Hospitalization)
  Sender: FDA-Public Use
  Company Number: US-BAYER-201028095NA

PATIENT
  Sex: Female
  Weight: 75 kg

DRUGS (14)
  1. YASMIN [Suspect]
     Indication: ORAL CONTRACEPTION
  2. ANTIEMETICS AND ANTINAUSEANTS [Concomitant]
     Dosage: UNK
     Dates: start: 20060709
  3. YAZ [Suspect]
     Indication: ORAL CONTRACEPTION
  4. IMITREX [Concomitant]
  5. YAZ [Suspect]
     Indication: ACNE
     Dosage: UNK
     Route: 048
     Dates: start: 20060101, end: 20090101
  6. PRILOSEC [Concomitant]
  7. VICODIN [Concomitant]
     Indication: ABDOMINAL PAIN
  8. MOTRIN [Concomitant]
     Dosage: UNK
     Dates: start: 19980101
  9. NAPROSYN [Concomitant]
     Dosage: UNK
     Dates: start: 19980101
  10. PROMETHAZINE [Concomitant]
  11. LOVENOX [Concomitant]
     Dosage: UNK
     Dates: start: 20060817
  12. YASMIN [Suspect]
     Indication: ACNE
     Dosage: UNK UNK, UNK
     Route: 048
     Dates: start: 20020101, end: 20060101
  13. ACETAMINOPHEN AND HYDROCODONE BITARTRATE [Concomitant]
  14. ZOMIG [Concomitant]
     Indication: MIGRAINE
     Dosage: UNK
     Dates: start: 20070101

REACTIONS (8)
  - FLANK PAIN [None]
  - CHOLECYSTITIS CHRONIC [None]
  - CHOLELITHIASIS [None]
  - ABDOMINAL PAIN UPPER [None]
  - DYSPEPSIA [None]
  - PAIN [None]
  - VOMITING [None]
  - NAUSEA [None]
